FAERS Safety Report 21469935 (Version 1)
Quarter: 2022Q4

REPORT INFORMATION
  Report Type: Spontaneous
  Country: US (occurrence: US)
  Receive Date: 20221018
  Receipt Date: 20221018
  Transmission Date: 20230112
  Serious: No
  Sender: FDA-Public Use
  Company Number: US-ALLERGAN-2143243US

PATIENT
  Sex: Female

DRUGS (2)
  1. LINZESS [Suspect]
     Active Substance: LINACLOTIDE
     Indication: Constipation
     Dosage: 145 ?G
     Dates: start: 2021
  2. Several blood pressure medications [Concomitant]
     Indication: Hypertension

REACTIONS (2)
  - Drug ineffective [Unknown]
  - Product physical issue [Unknown]
